FAERS Safety Report 19378188 (Version 1)
Quarter: 2021Q2

REPORT INFORMATION
  Report Type: Report from Study
  Country: KR (occurrence: KR)
  Receive Date: 20210605
  Receipt Date: 20210605
  Transmission Date: 20210717
  Serious: Yes (Other)
  Sender: FDA-Public Use
  Company Number: KR-AMGEN INC.-KORCT2021084136

PATIENT
  Age: 36 Year
  Sex: Female

DRUGS (89)
  1. DECITABINE. [Concomitant]
     Active Substance: DECITABINE
     Dosage: 20 UNK, QD
     Dates: start: 20110524, end: 20110524
  2. DECITABINE. [Concomitant]
     Active Substance: DECITABINE
     Dosage: 20 UNK, QD
     Dates: start: 20110627, end: 20110627
  3. DECITABINE. [Concomitant]
     Active Substance: DECITABINE
     Dosage: 20 UNK, QD
     Dates: start: 20110629, end: 20110629
  4. DECITABINE. [Concomitant]
     Active Substance: DECITABINE
     Dosage: 20 UNK, QD
     Dates: start: 20110801, end: 20110801
  5. AMPHOTERICIN B. [Concomitant]
     Active Substance: AMPHOTERICIN B
     Dosage: 45.3 MILLIGRAM
     Dates: start: 20110902, end: 20110907
  6. CEFEPIME [Concomitant]
     Active Substance: CEFEPIME HYDROCHLORIDE
     Dosage: 4 UNK
     Dates: start: 20110617, end: 20110626
  7. FUROSEMIDE. [Concomitant]
     Active Substance: FUROSEMIDE
     Dosage: 20 MILLIGRAM
     Dates: start: 20110902, end: 20110902
  8. HEPARIN [Concomitant]
     Active Substance: HEPARIN SODIUM
     Indication: PRODUCT USED FOR UNKNOWN INDICATION
     Dosage: 20 UNK
     Dates: start: 20110609, end: 20110609
  9. HYDROCORTISONE. [Concomitant]
     Active Substance: HYDROCORTISONE
     Indication: PRODUCT USED FOR UNKNOWN INDICATION
     Dosage: 100 MILLIGRAM
     Dates: start: 20110503, end: 20110503
  10. ITRACONAZOLE. [Concomitant]
     Active Substance: ITRACONAZOLE
     Dosage: 600 MILLIGRAM
     Dates: start: 20110926, end: 20110926
  11. PARACETAMOL [Concomitant]
     Active Substance: ACETAMINOPHEN
     Dosage: 1300 MILLIGRAM
     Dates: start: 20110513, end: 20110513
  12. PARACETAMOL [Concomitant]
     Active Substance: ACETAMINOPHEN
     Dosage: 1300 MILLIGRAM
     Dates: start: 20110817, end: 20110915
  13. FILGRASTIM [Suspect]
     Active Substance: FILGRASTIM
     Indication: PRODUCT USED FOR UNKNOWN INDICATION
     Dosage: 150 UNK
     Route: 065
     Dates: start: 20110509, end: 20110509
  14. FILGRASTIM [Suspect]
     Active Substance: FILGRASTIM
     Dosage: 150 UNK
     Route: 065
     Dates: start: 20110623, end: 20110625
  15. FILGRASTIM [Suspect]
     Active Substance: FILGRASTIM
     Dosage: 150 UNK
     Route: 065
     Dates: start: 20110724, end: 20110730
  16. DECITABINE. [Concomitant]
     Active Substance: DECITABINE
     Dosage: 20 UNK, QD
     Dates: start: 20110419, end: 20110419
  17. DECITABINE. [Concomitant]
     Active Substance: DECITABINE
     Dosage: 20 UNK, QD
     Dates: start: 20110525, end: 20110525
  18. DECITABINE. [Concomitant]
     Active Substance: DECITABINE
     Dosage: 20 UNK, QD
     Dates: start: 20110527, end: 20110527
  19. DECITABINE. [Concomitant]
     Active Substance: DECITABINE
     Dosage: 20 UNK, QD
     Dates: start: 20110628, end: 20110628
  20. DECITABINE. [Concomitant]
     Active Substance: DECITABINE
     Dosage: 20 UNK, QD
     Dates: start: 20110805, end: 20110805
  21. AMPHOTERICIN B. [Concomitant]
     Active Substance: AMPHOTERICIN B
     Dosage: 45 MILLIGRAM
     Dates: start: 20110920, end: 20110920
  22. AMPHOTERICIN B. [Concomitant]
     Active Substance: AMPHOTERICIN B
     Dosage: 46.3 MILLIGRAM
     Dates: start: 20110908, end: 20110913
  23. AMPICILLIN + CLOXACILLIN [AMPICILLIN;CLOXACILLIN] [Concomitant]
     Indication: PRODUCT USED FOR UNKNOWN INDICATION
     Dosage: 6000 MILLIGRAM
     Dates: start: 20110826, end: 20110826
  24. CEFEPIME [Concomitant]
     Active Substance: CEFEPIME HYDROCHLORIDE
     Dosage: 4 UNK
     Dates: start: 20110724, end: 20110803
  25. MAGNESIUM SULFATE. [Concomitant]
     Active Substance: MAGNESIUM SULFATE
     Indication: PRODUCT USED FOR UNKNOWN INDICATION
     Dosage: 20 UNK
     Dates: start: 20110907, end: 20111003
  26. PROPACETAMOL [Concomitant]
     Active Substance: PROPACETAMOL
     Dosage: 1 UNK
     Dates: start: 20110817, end: 20110907
  27. PROPACETAMOL [Concomitant]
     Active Substance: PROPACETAMOL
     Dosage: 2 UNK
     Dates: start: 20110512, end: 20110512
  28. DECITABINE. [Concomitant]
     Active Substance: DECITABINE
     Dosage: 20 UNK, QD
     Dates: start: 20110422, end: 20110422
  29. DECITABINE. [Concomitant]
     Active Substance: DECITABINE
     Dosage: 20 UNK, QD
     Dates: start: 20110526, end: 20110526
  30. DECITABINE. [Concomitant]
     Active Substance: DECITABINE
     Dosage: 20 UNK, QD
     Dates: start: 20110804, end: 20110804
  31. ITRACONAZOLE. [Concomitant]
     Active Substance: ITRACONAZOLE
     Dosage: 200 MILLIGRAM
     Dates: start: 20110801, end: 20110902
  32. LACTULOSE. [Concomitant]
     Active Substance: LACTULOSE
     Indication: PRODUCT USED FOR UNKNOWN INDICATION
     Dosage: 15 UNK
     Dates: start: 20110820, end: 20110929
  33. LACTULOSE. [Concomitant]
     Active Substance: LACTULOSE
     Dosage: 45 UNK
     Dates: start: 20110820, end: 20110929
  34. PARACETAMOL [Concomitant]
     Active Substance: ACETAMINOPHEN
     Dosage: 2600 MILLIGRAM
     Dates: start: 20210514, end: 20210514
  35. POLYCARBOPHIL CALCIUM [Concomitant]
     Active Substance: CALCIUM POLYCARBOPHIL
     Indication: PRODUCT USED FOR UNKNOWN INDICATION
     Dosage: 1875 MILLIGRAM
     Dates: start: 20110825, end: 20111011
  36. POTASSIUM CHLORIDE. [Concomitant]
     Active Substance: POTASSIUM CHLORIDE
     Indication: PRODUCT USED FOR UNKNOWN INDICATION
     Dosage: 20 UNK
     Dates: start: 20110901, end: 20111004
  37. POTASSIUM CHLORIDE. [Concomitant]
     Active Substance: POTASSIUM CHLORIDE
     Dosage: 60 UNK
     Dates: start: 20110817, end: 20110821
  38. POTASSIUM CHLORIDE. [Concomitant]
     Active Substance: POTASSIUM CHLORIDE
     Dosage: 4800 MILLIGRAM
     Dates: start: 20110905, end: 20111004
  39. PROPACETAMOL [Concomitant]
     Active Substance: PROPACETAMOL
     Dosage: 1 UNK
     Dates: start: 20110513, end: 20110514
  40. FILGRASTIM [Suspect]
     Active Substance: FILGRASTIM
     Dosage: 150 UNK
     Route: 065
     Dates: start: 20110915, end: 20110915
  41. AMPHOTERICIN B. [Concomitant]
     Active Substance: AMPHOTERICIN B
     Dosage: 46 MILLIGRAM
     Dates: start: 20110914, end: 20110919
  42. CEFEPIME [Concomitant]
     Active Substance: CEFEPIME HYDROCHLORIDE
     Indication: PRODUCT USED FOR UNKNOWN INDICATION
     Dosage: 4 UNK
     Dates: start: 20110509, end: 20110511
  43. CEFTRIAXONE. [Concomitant]
     Active Substance: CEFTRIAXONE
     Indication: PRODUCT USED FOR UNKNOWN INDICATION
     Dosage: 4 UNK
     Dates: start: 20110826, end: 20110920
  44. CHLORPHENAMINE [Concomitant]
     Active Substance: CHLORPHENIRAMINE MALEATE
     Indication: PRODUCT USED FOR UNKNOWN INDICATION
     Dosage: 4 MILLIGRAM
     Dates: start: 20110503, end: 20110503
  45. CIPROFLOXACIN. [Concomitant]
     Active Substance: CIPROFLOXACIN
     Indication: PRODUCT USED FOR UNKNOWN INDICATION
     Dosage: 500 MILLIGRAM
     Dates: start: 20110523, end: 20110523
  46. CIPROFLOXACIN. [Concomitant]
     Active Substance: CIPROFLOXACIN
     Dosage: 500 MILLIGRAM
     Dates: start: 20110803, end: 20110805
  47. FUROSEMIDE. [Concomitant]
     Active Substance: FUROSEMIDE
     Indication: PRODUCT USED FOR UNKNOWN INDICATION
     Dosage: 10 MILLIGRAM
     Dates: start: 20110512, end: 20110512
  48. ITRACONAZOLE. [Concomitant]
     Active Substance: ITRACONAZOLE
     Dosage: 200 MILLIGRAM
     Dates: start: 20110627, end: 20110731
  49. MAGNESIUM OXIDE. [Concomitant]
     Active Substance: MAGNESIUM OXIDE
     Indication: PRODUCT USED FOR UNKNOWN INDICATION
     Dosage: 1000 MILLIGRAM
     Dates: start: 20110817, end: 20110915
  50. PROPACETAMOL [Concomitant]
     Active Substance: PROPACETAMOL
     Dosage: 1 UNK
     Dates: start: 20110724, end: 20110725
  51. VANCOMYCIN [Concomitant]
     Active Substance: VANCOMYCIN
     Dosage: 2 UNK
     Dates: start: 20110819, end: 20110821
  52. FILGRASTIM [Suspect]
     Active Substance: FILGRASTIM
     Dosage: 150 UNK
     Route: 065
     Dates: start: 20110911, end: 20110911
  53. FILGRASTIM [Suspect]
     Active Substance: FILGRASTIM
     Dosage: 150 UNK
     Route: 065
     Dates: start: 20110920, end: 20110920
  54. DECITABINE. [Concomitant]
     Active Substance: DECITABINE
     Indication: PRODUCT USED FOR UNKNOWN INDICATION
     Dosage: 20 UNK, QD
     Dates: start: 20110418, end: 20110418
  55. DECITABINE. [Concomitant]
     Active Substance: DECITABINE
     Dosage: 20 UNK, QD
     Dates: start: 20110420, end: 20110420
  56. DECITABINE. [Concomitant]
     Active Substance: DECITABINE
     Dosage: 20 UNK, QD
     Dates: start: 20110803, end: 20110803
  57. PARACETAMOL [Concomitant]
     Active Substance: ACETAMINOPHEN
     Dosage: 1300 MILLIGRAM
     Dates: start: 20110724, end: 20110726
  58. VANCOMYCIN [Concomitant]
     Active Substance: VANCOMYCIN
     Dosage: 2 UNK
     Dates: start: 20110726, end: 20110728
  59. VANCOMYCIN [Concomitant]
     Active Substance: VANCOMYCIN
     Dosage: 2.4 UNK
     Dates: start: 20110822, end: 20110822
  60. FILGRASTIM [Suspect]
     Active Substance: FILGRASTIM
     Dosage: 150 UNK
     Route: 065
     Dates: start: 20110817, end: 20110905
  61. DECITABINE. [Concomitant]
     Active Substance: DECITABINE
     Dosage: 20 UNK, QD
     Dates: start: 20110523, end: 20110523
  62. DECITABINE. [Concomitant]
     Active Substance: DECITABINE
     Dosage: 20 UNK, QD
     Dates: start: 20110630, end: 20110630
  63. DECITABINE. [Concomitant]
     Active Substance: DECITABINE
     Dosage: 20 UNK, QD
     Dates: start: 20110701, end: 20110701
  64. DECITABINE. [Concomitant]
     Active Substance: DECITABINE
     Dosage: 20 UNK, QD
     Dates: start: 20110802, end: 20110802
  65. AMOXICILLIN + CLAV. POTASSIUM [Concomitant]
     Active Substance: AMOXICILLIN\CLAVULANATE POTASSIUM
     Indication: PRODUCT USED FOR UNKNOWN INDICATION
     Dosage: 1875 MILLIGRAM
     Dates: start: 20110921, end: 20111017
  66. CEFEPIME [Concomitant]
     Active Substance: CEFEPIME HYDROCHLORIDE
     Dosage: 4 UNK
     Dates: start: 20110801, end: 20110824
  67. MEROPENEM. [Concomitant]
     Active Substance: MEROPENEM
     Indication: PRODUCT USED FOR UNKNOWN INDICATION
     Dosage: 3000 MILLIGRAM
     Dates: start: 20110511, end: 20110522
  68. PROPACETAMOL [Concomitant]
     Active Substance: PROPACETAMOL
     Dosage: 3 UNK
     Dates: start: 20110511, end: 20110511
  69. VANCOMYCIN [Concomitant]
     Active Substance: VANCOMYCIN
     Dosage: 2.4 UNK
     Dates: start: 20110729, end: 20110803
  70. FILGRASTIM [Suspect]
     Active Substance: FILGRASTIM
     Dosage: 150 UNK
     Route: 065
     Dates: start: 20110511, end: 20110519
  71. FILGRASTIM [Suspect]
     Active Substance: FILGRASTIM
     Dosage: 150 UNK
     Route: 065
     Dates: start: 20110924, end: 20110924
  72. AMPHOTERICIN B. [Concomitant]
     Active Substance: AMPHOTERICIN B
     Indication: PRODUCT USED FOR UNKNOWN INDICATION
     Dosage: 22.7 MILLIGRAM
     Dates: start: 20110901, end: 20110901
  73. CIPROFLOXACIN. [Concomitant]
     Active Substance: CIPROFLOXACIN
     Dosage: 500 MILLIGRAM
     Dates: start: 20110528, end: 20110621
  74. CIPROFLOXACIN. [Concomitant]
     Active Substance: CIPROFLOXACIN
     Dosage: 500 MILLIGRAM
     Dates: start: 20110628, end: 20110723
  75. CIPROFLOXACIN. [Concomitant]
     Active Substance: CIPROFLOXACIN
     Dosage: 1000 MILLIGRAM
     Dates: start: 20110524, end: 20110527
  76. ITRACONAZOLE. [Concomitant]
     Active Substance: ITRACONAZOLE
     Indication: PRODUCT USED FOR UNKNOWN INDICATION
     Dosage: 200 MILLIGRAM
     Dates: start: 20110523, end: 20110621
  77. METRONIDAZOLE. [Concomitant]
     Active Substance: METRONIDAZOLE
     Indication: PRODUCT USED FOR UNKNOWN INDICATION
     Dosage: 1500 MILLIGRAM
     Dates: start: 20110826, end: 20110913
  78. PARACETAMOL [Concomitant]
     Active Substance: ACETAMINOPHEN
     Indication: PRODUCT USED FOR UNKNOWN INDICATION
     Dosage: 1300 MILLIGRAM
     Dates: start: 20110509, end: 20110511
  79. POTASSIUM CHLORIDE. [Concomitant]
     Active Substance: POTASSIUM CHLORIDE
     Dosage: 40 UNK
     Dates: start: 20110822, end: 20110830
  80. POTASSIUM CHLORIDE. [Concomitant]
     Active Substance: POTASSIUM CHLORIDE
     Dosage: 1800 MILLIGRAM
     Dates: start: 20110902, end: 20110904
  81. PROPACETAMOL [Concomitant]
     Active Substance: PROPACETAMOL
     Indication: PRODUCT USED FOR UNKNOWN INDICATION
     Dosage: 1 UNK
     Dates: start: 20110510, end: 20110510
  82. VANCOMYCIN [Concomitant]
     Active Substance: VANCOMYCIN
     Dosage: 1.4 UNK
     Dates: start: 20110824, end: 20110824
  83. DECITABINE. [Concomitant]
     Active Substance: DECITABINE
     Dosage: 20 UNK, QD
     Dates: start: 20110421, end: 20110421
  84. MAGNESIUM OXIDE. [Concomitant]
     Active Substance: MAGNESIUM OXIDE
     Dosage: 1500 MILLIGRAM
     Dates: start: 20110916, end: 20111011
  85. PARACETAMOL [Concomitant]
     Active Substance: ACETAMINOPHEN
     Dosage: 2600 MILLIGRAM
     Dates: start: 20110512, end: 20110512
  86. POTASSIUM CHLORIDE. [Concomitant]
     Active Substance: POTASSIUM CHLORIDE
     Dosage: 4800 MILLIGRAM
     Dates: start: 20110510, end: 20110514
  87. POTASSIUM PHOSPHATES [Concomitant]
     Active Substance: POTASSIUM PHOSPHATE, DIBASIC\POTASSIUM PHOSPHATE, MONOBASIC
     Indication: PRODUCT USED FOR UNKNOWN INDICATION
     Dosage: 20 UNK
     Dates: start: 20110511, end: 20110512
  88. VANCOMYCIN [Concomitant]
     Active Substance: VANCOMYCIN
     Indication: PRODUCT USED FOR UNKNOWN INDICATION
     Dosage: 0.8 UNK
     Dates: start: 20110801, end: 20110803
  89. VANCOMYCIN [Concomitant]
     Active Substance: VANCOMYCIN
     Dosage: 2 UNK
     Dates: start: 20110511, end: 20110518

REACTIONS (17)
  - Hypophosphataemia [Recovered/Resolved]
  - Azotaemia [Recovered/Resolved]
  - Hypokalaemia [Recovered/Resolved]
  - Alanine aminotransferase increased [Recovered/Resolved]
  - Hypocalcaemia [Recovered/Resolved]
  - Haemorrhoids [Recovered/Resolved]
  - Anaemia [Recovered/Resolved]
  - Neutropenia [Recovered/Resolved]
  - Thrombocytopenia [Recovered/Resolved]
  - Weight increased [Recovered/Resolved]
  - Pneumonia [Recovered/Resolved]
  - Haemorrhage [Recovered/Resolved]
  - Hypomagnesaemia [Recovered/Resolved]
  - Aspergillus infection [Recovered/Resolved]
  - Decreased appetite [Recovered/Resolved]
  - Oliguria [Recovered/Resolved]
  - Anorectal disorder [Recovered/Resolved]

NARRATIVE: CASE EVENT DATE: 20110509
